FAERS Safety Report 18314752 (Version 1)
Quarter: 2020Q3

REPORT INFORMATION
  Report Type: Spontaneous
  Country: IT (occurrence: IT)
  Receive Date: 20200925
  Receipt Date: 20200925
  Transmission Date: 20201103
  Serious: Yes (Hospitalization)
  Sender: FDA-Public Use
  Company Number: IT-NOVOPROD-753846

PATIENT
  Age: 85 Year
  Sex: Male

DRUGS (4)
  1. NOVORAPID [Suspect]
     Active Substance: INSULIN ASPART
     Indication: TYPE 2 DIABETES MELLITUS
     Dosage: 34 IU, QD
     Route: 058
     Dates: start: 20130305
  2. TRESIBA [Interacting]
     Active Substance: INSULIN DEGLUDEC
     Dosage: UNK (REDUCED DOSE)
     Route: 058
  3. NOVORAPID [Interacting]
     Active Substance: INSULIN ASPART
     Dosage: UNK (REDUCED DOSE)
     Route: 058
  4. TRESIBA [Interacting]
     Active Substance: INSULIN DEGLUDEC
     Indication: TYPE 2 DIABETES MELLITUS
     Dosage: 16 IU, QD
     Route: 058
     Dates: start: 20190820

REACTIONS (4)
  - Hypoglycaemia [Recovered/Resolved]
  - Loss of consciousness [Recovered/Resolved]
  - Drug interaction [Recovered/Resolved]
  - Medication error [Recovered/Resolved]

NARRATIVE: CASE EVENT DATE: 20200810
